FAERS Safety Report 4613475-X (Version None)
Quarter: 2005Q1

REPORT INFORMATION
  Report Type: 
  Country: None (occurrence: None)
  Receive Date: 20050317
  Receipt Date: 20050317
  Transmission Date: 20050727
  Serious: No
  Sender: FDA-Public Use
  Company Number: None

PATIENT
  Sex: Female
  Weight: 92 kg

DRUGS (9)
  1. ALL-TRANS RETINOIC ACID [Suspect]
     Dosage: 22.5 MG/M2 PO BID Q12HR STARTING ON DAY 1, FOR MAXIMIM OF 90 DAYS
     Route: 048
     Dates: start: 20040930, end: 20050310
  2. DAUNOMYCIN [Suspect]
     Dosage: 50MG/M2 IV BOLUS OVER 5-10 MIN QD ON DAYS 3-6.NOTE: FOR 3-14 YRS - IV BOLUS OVER 15-30 MIN, FOR {3 Y
     Route: 040
     Dates: start: 20040930
  3. CYTARABINE [Suspect]
     Dosage: 200 MG/M2/DAY CIV FOR 7 DAYS STARTING ON DAY 3
     Route: 042
     Dates: start: 20040930
  4. NORTRIPTYLINE HCL [Concomitant]
  5. LORAZEPAM [Concomitant]
  6. ARTHROTEC [Concomitant]
  7. GAGAPENTIN [Concomitant]
  8. ATRA [Concomitant]
  9. ZANTAC [Concomitant]

REACTIONS (7)
  - ARTHRALGIA [None]
  - CYST [None]
  - DYSPNOEA [None]
  - NECK PAIN [None]
  - PALLOR [None]
  - TACHYCARDIA [None]
  - THYMUS DISORDER [None]
